FAERS Safety Report 6704294-9 (Version None)
Quarter: 2010Q2

REPORT INFORMATION
  Report Type: 
  Country: None (occurrence: None)
  Receive Date: 20100430
  Receipt Date: 20100423
  Transmission Date: 20101027
  Serious: Yes (Hospitalization)
  Sender: FDA-Public Use
  Company Number: US-ROCHE-699945

PATIENT
  Sex: Male
  Weight: 108.1 kg

DRUGS (11)
  1. BEVACIZUMAB [Suspect]
     Dosage: ROUTE: IV INFUSION
     Route: 042
     Dates: start: 20100111, end: 20100419
  2. ERLOTINIB [Suspect]
     Route: 048
     Dates: start: 20100111, end: 20100419
  3. FLUOROURACIL [Suspect]
     Dosage: DRUG REPORTED AS FOLFOX 6, ROUTE: IV  INFUSION
     Route: 042
     Dates: start: 20100111, end: 20100419
  4. FOLINIC ACID [Suspect]
     Route: 042
     Dates: start: 20100111, end: 20100419
  5. OXALIPLATIN [Suspect]
     Route: 042
     Dates: start: 20100111, end: 20100419
  6. NEXIUM [Concomitant]
  7. LOMOTIL [Concomitant]
     Dosage: DOSE: 2.5-0.025 MG 1-2 Q6 HOURS
  8. BMX COCKTAIL [Concomitant]
     Dosage: 1 TSP SWISH AND SWALLOW PRN, DRUG REPORTED AS BMX
  9. COMPAZINE [Concomitant]
     Dosage: FREQUENCY: 1 EVERY 6 HOURS PRN
  10. ZOSYN [Concomitant]
     Dosage: DRUG REPORTED AS ZOYSN, FREQUENCY: IVBP Q6 HOURS
  11. FLAGYL [Concomitant]
     Route: 048
     Dates: start: 20100419

REACTIONS (5)
  - DECREASED APPETITE [None]
  - DIARRHOEA [None]
  - DYSPHAGIA [None]
  - DYSPNOEA EXERTIONAL [None]
  - NAUSEA [None]
